FAERS Safety Report 10068358 (Version 1)
Quarter: 2014Q2

REPORT INFORMATION
  Report Type: Spontaneous
  Country: US (occurrence: US)
  Receive Date: 20140409
  Receipt Date: 20140409
  Transmission Date: 20141212
  Serious: No
  Sender: FDA-Public Use
  Company Number: US-BAUSCH-BL-2014-000883

PATIENT
  Sex: Female
  Weight: 45.4 kg

DRUGS (1)
  1. LATANOPROST OPHTHALMIC SOLUTION 0.005% [Suspect]
     Indication: PRODUCT USED FOR UNKNOWN INDICATION
     Dosage: 2 DROPS PER DAY
     Route: 047

REACTIONS (2)
  - Abdominal discomfort [Unknown]
  - Frequent bowel movements [Unknown]
